FAERS Safety Report 13816971 (Version 2)
Quarter: 2017Q3

REPORT INFORMATION
  Report Type: Report from Study
  Country: US (occurrence: US)
  Receive Date: 20170731
  Receipt Date: 20170810
  Transmission Date: 20171127
  Serious: Yes (Other)
  Sender: FDA-Public Use
  Company Number: US-BRISTOL-MYERS SQUIBB COMPANY-BMS-2017-065080

PATIENT
  Age: 49 Year
  Sex: Female
  Weight: 93.4 kg

DRUGS (3)
  1. IPILIMUMAB [Suspect]
     Active Substance: IPILIMUMAB
     Indication: METASTATIC MALIGNANT MELANOMA
     Dosage: 1 DF, 564 UNITS NOS
     Route: 042
     Dates: start: 20161228, end: 20170118
  2. AMLODIPINE [Concomitant]
     Active Substance: AMLODIPINE BESYLATE
     Indication: HYPERTENSION
     Dosage: 10 MG, UNK
     Route: 048
     Dates: start: 20161216
  3. NIVOLUMAB [Suspect]
     Active Substance: NIVOLUMAB
     Indication: METASTATIC MALIGNANT MELANOMA
     Dosage: 1 DF: 472 UNITS NOS
     Route: 042
     Dates: start: 20161228, end: 20170426

REACTIONS (1)
  - Granulomatous pneumonitis [Recovering/Resolving]

NARRATIVE: CASE EVENT DATE: 20170710
